FAERS Safety Report 7325757-1 (Version None)
Quarter: 2011Q1

REPORT INFORMATION
  Report Type: 
  Country: None (occurrence: None)
  Receive Date: 20110302
  Receipt Date: 20101210
  Transmission Date: 20110831
  Serious: No
  Sender: FDA-Public Use
  Company Number: US-BAYER-2011-004707

PATIENT
  Sex: Female
  Weight: 91 kg

DRUGS (1)
  1. ALEVE [Suspect]
     Indication: CARPAL TUNNEL SYNDROME
     Dosage: DAILY, ONCE
     Route: 048
     Dates: start: 20101209

REACTIONS (2)
  - NAUSEA [None]
  - VOMITING [None]
